FAERS Safety Report 17683870 (Version 1)
Quarter: 2020Q2

REPORT INFORMATION
  Report Type: Report from Study
  Country: FR (occurrence: FR)
  Receive Date: 20200420
  Receipt Date: 20200420
  Transmission Date: 20200714
  Serious: Yes (Other)
  Sender: FDA-Public Use
  Company Number: PHHY2014FR099526

PATIENT
  Age: 12 Year
  Sex: Male
  Weight: 35.5 kg

DRUGS (2)
  1. SOMATROPIN. [Suspect]
     Active Substance: SOMATROPIN
     Dosage: 1.1 MG, QD
     Route: 065
     Dates: start: 20121227, end: 20160104
  2. SOMATROPIN. [Suspect]
     Active Substance: SOMATROPIN
     Indication: GROWTH HORMONE DEFICIENCY
     Dosage: 0.037 MG/KG, PER DAY
     Route: 058
     Dates: start: 20120102

REACTIONS (6)
  - Stress [Not Recovered/Not Resolved]
  - Hypothyroidism [Recovered/Resolved]
  - Decreased appetite [Not Recovered/Not Resolved]
  - Hypersensitivity [Recovered/Resolved]
  - Asthenia [Not Recovered/Not Resolved]
  - Spinal deformity [Not Recovered/Not Resolved]

NARRATIVE: CASE EVENT DATE: 20120105
